FAERS Safety Report 11414476 (Version 3)
Quarter: 2016Q1

REPORT INFORMATION
  Report Type: Report from Study
  Country: US (occurrence: US)
  Receive Date: 20150824
  Receipt Date: 20160104
  Transmission Date: 20160525
  Serious: Yes (Other)
  Sender: FDA-Public Use
  Company Number: US-ABBVIE-15P-163-1449985-00

PATIENT
  Age: 65 Year
  Sex: Male
  Weight: 70.37 kg

DRUGS (3)
  1. LEVODOPA [Concomitant]
     Active Substance: LEVODOPA
     Indication: PRODUCT USED FOR UNKNOWN INDICATION
     Route: 065
     Dates: start: 20150713
  2. DUOPA [Suspect]
     Active Substance: CARBIDOPA\LEVODOPA
     Indication: PARKINSON^S DISEASE
     Dosage: MD: 17 ML, CD: 7.2 ML/H
     Route: 050
     Dates: start: 20150807
  3. ATIVAN [Concomitant]
     Active Substance: LORAZEPAM
     Indication: ANXIETY
     Route: 065
     Dates: start: 20150713

REACTIONS (14)
  - On and off phenomenon [Unknown]
  - Stoma site erythema [Not Recovered/Not Resolved]
  - Stoma site erythema [Not Recovered/Not Resolved]
  - Feeling abnormal [Unknown]
  - Stoma site pain [Not Recovered/Not Resolved]
  - Abdominal discomfort [Unknown]
  - Stoma site discomfort [Unknown]
  - Flatulence [Unknown]
  - Stoma site extravasation [Not Recovered/Not Resolved]
  - Purulent discharge [Not Recovered/Not Resolved]
  - Stoma site discharge [Not Recovered/Not Resolved]
  - Incorrect dose administered [Recovered/Resolved]
  - Stoma site infection [Unknown]
  - Discomfort [Unknown]

NARRATIVE: CASE EVENT DATE: 201508
